FAERS Safety Report 8512628-8 (Version None)
Quarter: 2012Q2

REPORT INFORMATION
  Report Type: 
  Country: None (occurrence: None)
  Receive Date: 20120405
  Receipt Date: 20080821
  Transmission Date: 20120825
  Serious: Yes (Hospitalization)
  Sender: FDA-Public Use
  Company Number: PHEH2008US07464

PATIENT
  Age: 46 Year
  Sex: Female

DRUGS (1)
  1. RECLAST [Suspect]
     Indication: OSTEOPOROSIS
     Dosage: 5 MG, YEARLY, INFUSION
     Dates: start: 20080616, end: 20080616

REACTIONS (2)
  - OSTEONECROSIS [None]
  - PYREXIA [None]
